FAERS Safety Report 8891085 (Version 1)
Quarter: 2012Q4

REPORT INFORMATION
  Report Type: Report from Study
  Country: DE (occurrence: DE)
  Receive Date: 20121107
  Receipt Date: 20121107
  Transmission Date: 20130627
  Serious: Yes (Hospitalization)
  Sender: FDA-Public Use
  Company Number: DE-PFIZER INC-2012248571

PATIENT
  Age: 72 Year
  Sex: Male
  Weight: 82 kg

DRUGS (17)
  1. IRINOTECAN HCL [Suspect]
     Indication: METASTATIC COLORECTAL CANCER
     Dosage: 165 mg/m2, UNK
     Dates: start: 20120905, end: 20121008
  2. LEUCOVORIN [Suspect]
     Indication: METASTATIC COLORECTAL CANCER
     Dosage: 200 mg/m2, UNK
     Dates: start: 20120905, end: 20121008
  3. BEVACIZUMAB [Suspect]
     Indication: METASTATIC COLORECTAL CANCER
     Dosage: 5 mg/kg, UNK
     Route: 042
     Dates: start: 20120905, end: 20121008
  4. OXALIPLATIN [Suspect]
     Indication: METASTATIC COLORECTAL CANCER
     Dosage: 85 mg/m2, UNK
     Dates: start: 20120905, end: 20121008
  5. FLUOROURACIL [Suspect]
     Indication: METASTATIC COLORECTAL CANCER
     Dosage: 3200 mg/m2, UNK
     Dates: start: 20120905, end: 20121008
  6. ASPIRIN [Concomitant]
     Indication: ANTICOAGULANT THERAPY
     Dosage: 100 mg, 1x/day
     Route: 048
  7. AMLODIPINE [Concomitant]
     Indication: HYPERTENSION
     Dosage: 5 mg, 2x/day
     Route: 048
  8. ALLOPURINOL [Concomitant]
     Indication: PROPHYLAXIS
     Dosage: 100 mg, 1x/day
     Route: 048
  9. AMPHOTERICIN B [Concomitant]
     Indication: CHEMOPROPHYLAXIS NOS
     Dosage: 4 x 1 Pipette
     Route: 048
     Dates: start: 20120921, end: 20120926
  10. AMPHOTERICIN B [Concomitant]
     Dosage: UNK
  11. PANTOPRAZOL [Concomitant]
     Indication: PROPHYLAXIS
     Dosage: 20 mg, 2x/day
     Route: 048
     Dates: start: 20120921
  12. RAMIPRIL [Concomitant]
     Indication: HYPERTENSION
     Dosage: 2.5 mg, 2x/day
     Dates: end: 20121006
  13. BISOPROLOL [Concomitant]
     Indication: HYPERTENSION
     Dosage: 2.5 mg, 1x/day
     Dates: end: 20121006
  14. TORSEMIDE [Concomitant]
     Dosage: 5 mg, 1x/day
  15. SIMVASTATIN [Concomitant]
     Dosage: 40 mg, 1x/day
  16. FILGRASTIM [Concomitant]
     Dosage: 30 Mill I.E paused
  17. KALINOR [Concomitant]
     Dosage: EFFERVESCENT TABLETS ACC TO BLOOD VALUE

REACTIONS (2)
  - Vomiting [Recovered/Resolved]
  - Ventricular fibrillation [Recovered/Resolved with Sequelae]
